FAERS Safety Report 4328517-9 (Version None)
Quarter: 2004Q1

REPORT INFORMATION
  Report Type: 
  Country: None (occurrence: None)
  Receive Date: 20040331
  Receipt Date: 20040223
  Transmission Date: 20041129
  Serious: Yes (Hospitalization, Other)
  Sender: FDA-Public Use
  Company Number: PR-MERCK-0402USA01695

PATIENT
  Age: 25 Year
  Sex: Male
  Weight: 81 kg

DRUGS (4)
  1. ULTRACET [Concomitant]
     Indication: SURGERY
     Route: 048
     Dates: start: 20040204
  2. KEFLEX [Concomitant]
     Indication: SURGERY
     Route: 048
     Dates: start: 20040202
  3. VIOXX [Suspect]
     Indication: POSTOPERATIVE ANALGESIA
     Route: 048
     Dates: start: 20040202, end: 20040207
  4. VIOXX [Suspect]
     Indication: SURGERY
     Route: 048
     Dates: start: 20040202, end: 20040207

REACTIONS (2)
  - ANAEMIA [None]
  - RENAL TUBULAR NECROSIS [None]
